FAERS Safety Report 7330663-2 (Version None)
Quarter: 2011Q1

REPORT INFORMATION
  Report Type: 
  Country: None (occurrence: None)
  Receive Date: 20110225
  Receipt Date: 20110225
  Transmission Date: 20110831
  Serious: Yes (Hospitalization, Disabling)
  Sender: FDA-Public Use
  Company Number: None

PATIENT
  Age: 76 Year
  Sex: Female
  Weight: 48.5349 kg

DRUGS (7)
  1. ESTRADIOL [Concomitant]
  2. ASPIRIN [Concomitant]
  3. MALTAQ [Concomitant]
  4. PRADAXA [Suspect]
     Indication: ATRIAL FIBRILLATION
     Dosage: 150MG BID PO
     Route: 048
     Dates: start: 20110114, end: 20110203
  5. VITAMIN-MINERAL COMPOUND TAB [Concomitant]
  6. ENALAPRIL [Concomitant]
  7. POTASSIUM GLUCONATE TAB [Concomitant]

REACTIONS (5)
  - PROTHROMBIN TIME PROLONGED [None]
  - BLOOD UREA INCREASED [None]
  - BLOOD CREATININE INCREASED [None]
  - INTERNATIONAL NORMALISED RATIO INCREASED [None]
  - GLOMERULAR FILTRATION RATE INCREASED [None]
